FAERS Safety Report 10566199 (Version 3)
Quarter: 2015Q1

REPORT INFORMATION
  Report Type: Report from Study
  Country: CA (occurrence: CA)
  Receive Date: 20141105
  Receipt Date: 20150210
  Transmission Date: 20150720
  Serious: Yes (Hospitalization, Other)
  Sender: FDA-Public Use
  Company Number: CA-ABBVIE-14K-028-1301621-00

PATIENT
  Age: 39 Year
  Sex: Male
  Weight: 54.48 kg

DRUGS (3)
  1. HUMIRA [Suspect]
     Active Substance: ADALIMUMAB
     Route: 058
     Dates: start: 201501
  2. HUMIRA [Suspect]
     Active Substance: ADALIMUMAB
     Indication: CROHN^S DISEASE
     Route: 058
     Dates: start: 20100112, end: 20140925
  3. CIPRALEX [Concomitant]
     Active Substance: ESCITALOPRAM OXALATE
     Indication: DEPRESSION

REACTIONS (4)
  - Large intestine perforation [Recovered/Resolved]
  - Procedural intestinal perforation [Unknown]
  - Malaise [Unknown]
  - Colonoscopy abnormal [Not Recovered/Not Resolved]

NARRATIVE: CASE EVENT DATE: 20141002
